FAERS Safety Report 17711690 (Version 1)
Quarter: 2020Q2

REPORT INFORMATION
  Report Type: Spontaneous
  Country: US (occurrence: US)
  Receive Date: 20200425
  Receipt Date: 20200425
  Transmission Date: 20200714
  Serious: No
  Sender: FDA-Public Use
  Company Number: None

PATIENT
  Age: 26 Year
  Sex: Male
  Weight: 81 kg

DRUGS (6)
  1. DEXEDRINE XR [Concomitant]
  2. DEXEDRINE IR [Concomitant]
  3. DEXTROAMPHETAMINE 5MG TABLET [Suspect]
     Active Substance: DEXTROAMPHETAMINE
     Indication: ATTENTION DEFICIT HYPERACTIVITY DISORDER
     Dosage: ?          QUANTITY:1 TABLET(S);?
     Route: 048
     Dates: start: 20200410, end: 20200420
  4. SOY PROTEIN POWDER SUPPLEMENT [Concomitant]
  5. FIBER SUPPLEMENT [Concomitant]
     Active Substance: DIETARY SUPPLEMENT
  6. MULTIVITAMIN [Concomitant]
     Active Substance: VITAMINS

REACTIONS (6)
  - Drug ineffective [None]
  - Disturbance in attention [None]
  - Anxiety [None]
  - Product substitution issue [None]
  - Mood swings [None]
  - Insomnia [None]

NARRATIVE: CASE EVENT DATE: 20200425
